FAERS Safety Report 9787517 (Version 2)
Quarter: 2013Q4

REPORT INFORMATION
  Report Type: Report from Study
  Country: CN (occurrence: CN)
  Receive Date: 20131230
  Receipt Date: 20131230
  Transmission Date: 20140711
  Serious: Yes (Other)
  Sender: FDA-Public Use
  Company Number: CN-ROCHE-1303618

PATIENT
  Sex: 0

DRUGS (2)
  1. CAPECITABINE [Suspect]
     Indication: GASTRIC CANCER
     Dosage: FOR 14 DAYS EVERY 3 WEEKS
     Route: 048
  2. OXALIPLATIN [Suspect]
     Indication: GASTRIC CANCER
     Dosage: ON DAY ONE 130 MG/M2 L-OHP ADDED TO 500 ML 5% GLUCOSE INJECTION SOLUTION, VIA INTRAVENOUS DRIP FOR 2
     Route: 041

REACTIONS (6)
  - Bone marrow failure [Unknown]
  - Neurotoxicity [Unknown]
  - Nausea [Unknown]
  - Vomiting [Unknown]
  - Palmar-plantar erythrodysaesthesia syndrome [Unknown]
  - Stomatitis [Unknown]
